FAERS Safety Report 22016242 (Version 1)
Quarter: 2023Q1

REPORT INFORMATION
  Report Type: Spontaneous
  Country: US (occurrence: US)
  Receive Date: 20230221
  Receipt Date: 20230221
  Transmission Date: 20230417
  Serious: No
  Sender: FDA-Public Use
  Company Number: US-UNITED THERAPEUTICS-UNT-2023-004682

PATIENT
  Age: 71 Year
  Sex: Female
  Weight: 63.946 kg

DRUGS (3)
  1. TYVASO DPI [Suspect]
     Active Substance: TREPROSTINIL
     Indication: Pulmonary arterial hypertension
     Dosage: 48 ?G, QID
  2. TYVASO DPI [Suspect]
     Active Substance: TREPROSTINIL
     Dosage: UNK
     Dates: start: 20221215
  3. TYVASO DPI [Suspect]
     Active Substance: TREPROSTINIL
     Indication: Pulmonary arterial hypertension
     Dosage: UNK

REACTIONS (7)
  - Heart rate increased [Unknown]
  - Oxygen saturation decreased [Unknown]
  - Cough [Unknown]
  - Dizziness [Unknown]
  - Chest discomfort [Unknown]
  - Dyspepsia [Unknown]
  - Therapy non-responder [Unknown]

NARRATIVE: CASE EVENT DATE: 20230214
